FAERS Safety Report 11081203 (Version 1)
Quarter: 2015Q2

REPORT INFORMATION
  Report Type: Spontaneous
  Country: TR (occurrence: TR)
  Receive Date: 20150501
  Receipt Date: 20150501
  Transmission Date: 20150821
  Serious: Yes (Other)
  Sender: FDA-Public Use
  Company Number: TR-ACTAVIS-2015-08774

PATIENT
  Age: 55 Year
  Sex: Female
  Weight: 68 kg

DRUGS (5)
  1. CURATINOX [Suspect]
     Active Substance: OXALIPLATIN
     Indication: PRODUCT USED FOR UNKNOWN INDICATION
     Dosage: 220 MG, DAILY
     Route: 042
     Dates: start: 20150312
  2. AVIL                               /00085102/ [Concomitant]
     Indication: PRODUCT USED FOR UNKNOWN INDICATION
     Dosage: 45.5 MG, UNKNOWN
     Route: 042
     Dates: start: 20150312, end: 20150312
  3. SINAREX [Concomitant]
     Indication: PRODUCT USED FOR UNKNOWN INDICATION
     Dosage: 3 MG, UNKNOWN
     Route: 042
     Dates: start: 20150312, end: 20150312
  4. DEKSAMET                           /00016001/ [Concomitant]
     Indication: PRODUCT USED FOR UNKNOWN INDICATION
     Dosage: 80 MG, UNKNOWN
     Route: 042
     Dates: start: 20150312, end: 20150312
  5. ULCURAN [Concomitant]
     Indication: PRODUCT USED FOR UNKNOWN INDICATION
     Dosage: 50 MG, UNKNOWN
     Route: 042
     Dates: start: 20150312, end: 20150312

REACTIONS (6)
  - Dysphagia [Recovered/Resolved]
  - Hypoaesthesia oral [Recovered/Resolved]
  - Vomiting [Recovered/Resolved]
  - Speech disorder [Recovered/Resolved]
  - Hypoaesthesia [Recovered/Resolved]
  - Nausea [Recovered/Resolved]

NARRATIVE: CASE EVENT DATE: 20150312
